FAERS Safety Report 4825332-4 (Version None)
Quarter: 2005Q4

REPORT INFORMATION
  Report Type: 
  Country: None (occurrence: None)
  Receive Date: 20051111
  Receipt Date: 20051028
  Transmission Date: 20060501
  Serious: Yes (Other)
  Sender: FDA-Public Use
  Company Number: JP-JNJFOC-20051101585

PATIENT
  Age: 5 Year
  Sex: Male

DRUGS (2)
  1. RISPERDAL [Suspect]
     Route: 048
  2. RISPERDAL [Suspect]
     Indication: DRUG USE FOR UNKNOWN INDICATION
     Route: 048

REACTIONS (4)
  - DECREASED ACTIVITY [None]
  - ELECTROENCEPHALOGRAM ABNORMAL [None]
  - GAIT DISTURBANCE [None]
  - MYOCLONUS [None]
